FAERS Safety Report 5436057-9 (Version None)
Quarter: 2007Q3

REPORT INFORMATION
  Report Type: 
  Country: None (occurrence: None)
  Receive Date: 20070831
  Receipt Date: 20070824
  Transmission Date: 20080115
  Serious: Yes (Hospitalization)
  Sender: FDA-Public Use
  Company Number: JP-AVENTIS-200711337JP

PATIENT
  Age: 95 Year
  Sex: Female

DRUGS (8)
  1. LASIX [Suspect]
     Dosage: ROUTE: GASTROSTOMY TUBE
     Route: 050
     Dates: start: 20000101, end: 20070425
  2. GASLON N [Concomitant]
     Indication: GASTRIC ULCER
     Dosage: ROUTE: GASTROSTOMY TUBE
     Route: 050
     Dates: end: 20070507
  3. ZANTAC 150 [Concomitant]
     Indication: GASTRIC ULCER
     Dosage: ROUTE: GASTROSTOMY TUBE
     Route: 050
     Dates: end: 20070507
  4. SENNOSIDE [Concomitant]
     Indication: CONSTIPATION
     Dosage: ROUTE: GASTROSTOMY TUBE
     Route: 050
     Dates: end: 20070507
  5. MAGNESIUM OXIDE [Concomitant]
     Indication: CONSTIPATION
     Dosage: ROUTE: GASTROSTOMY TUBE
     Route: 050
     Dates: end: 20070507
  6. PANTOSIN [Concomitant]
     Indication: CONSTIPATION
     Dosage: ROUTE: GASTROSTOMY TUBE
     Route: 050
     Dates: end: 20070507
  7. VITAMIN B NOS [Concomitant]
     Dosage: ROUTE: GASTROSTOMY TUBE
     Route: 050
     Dates: end: 20070507
  8. ALDACTONE [Concomitant]
     Dosage: ROUTE: GASTROSTOMY TUBE
     Route: 050
     Dates: start: 20070425, end: 20070507

REACTIONS (1)
  - PEMPHIGOID [None]
